FAERS Safety Report 7618886-6 (Version None)
Quarter: 2011Q3

REPORT INFORMATION
  Report Type: 
  Country: None (occurrence: None)
  Receive Date: 20110718
  Receipt Date: 20110712
  Transmission Date: 20111222
  Serious: Yes (Hospitalization, Other)
  Sender: FDA-Public Use
  Company Number: US-BAYER-2011-049871

PATIENT
  Age: 48 Year
  Sex: Female
  Weight: 85.261 kg

DRUGS (4)
  1. MIRENA [Suspect]
     Indication: MENORRHAGIA
     Dosage: 20 MCG/24HR, UNK
     Dates: start: 20090409, end: 20110518
  2. MIRENA [Suspect]
     Indication: MENOPAUSAL SYMPTOMS
     Dosage: 20 MCG/24HR, CONT
     Route: 015
     Dates: start: 20110518, end: 20110519
  3. CITALOPRAM HYDROBROMIDE [Concomitant]
     Dosage: 20 MG, UNK
     Route: 048
  4. HYDROCHLOROTHIAZIDE [Concomitant]
     Dosage: 25 MG, UNK
     Route: 048

REACTIONS (4)
  - VAGINAL HAEMORRHAGE [None]
  - DEVICE DISLOCATION [None]
  - UTERINE POLYP [None]
  - DEVICE EXPULSION [None]
